FAERS Safety Report 14686845 (Version 2)
Quarter: 2018Q2

REPORT INFORMATION
  Report Type: Spontaneous
  Country: US (occurrence: US)
  Receive Date: 20180327
  Receipt Date: 20180522
  Transmission Date: 20180711
  Serious: Yes (Hospitalization, Other)
  Sender: FDA-Public Use
  Company Number: US-CELGENEUS-USA-20180308205

PATIENT
  Age: 70 Year
  Sex: Female
  Weight: 66.28 kg

DRUGS (1)
  1. POMALYST [Suspect]
     Active Substance: POMALIDOMIDE
     Indication: PLASMA CELL MYELOMA
     Dosage: 2 MILLIGRAM
     Route: 048
     Dates: start: 201801

REACTIONS (4)
  - Abnormal loss of weight [Unknown]
  - Anaemia [Unknown]
  - Urinary tract infection [Recovered/Resolved]
  - Platelet count decreased [Unknown]

NARRATIVE: CASE EVENT DATE: 2018
